FAERS Safety Report 25094771 (Version 2)
Quarter: 2025Q2

REPORT INFORMATION
  Report Type: Spontaneous
  Country: US (occurrence: US)
  Receive Date: 20250319
  Receipt Date: 20250516
  Transmission Date: 20250717
  Serious: No
  Sender: SANOFI AVENTIS
  Company Number: US-SA-2025SA080052

PATIENT
  Sex: Female

DRUGS (7)
  1. DUPIXENT [Suspect]
     Active Substance: DUPILUMAB
     Indication: Dermatitis atopic
     Dosage: 300 MG, Q4W
     Route: 058
     Dates: start: 20250314
  2. CLOBETASOL [Concomitant]
     Active Substance: CLOBETASOL
  3. CULTURELLE [Concomitant]
     Active Substance: LACTOBACILLUS RHAMNOSUS
  4. METADATE CD [Concomitant]
     Active Substance: METHYLPHENIDATE HYDROCHLORIDE
  5. MUPIROCIN [Concomitant]
     Active Substance: MUPIROCIN
  6. PIMECROLIMUS [Concomitant]
     Active Substance: PIMECROLIMUS
  7. Triamcinolon [Concomitant]

REACTIONS (3)
  - Discomfort [Unknown]
  - Sleep disorder due to a general medical condition [Unknown]
  - Rash [Unknown]
